FAERS Safety Report 17515425 (Version 1)
Quarter: 2020Q1

REPORT INFORMATION
  Report Type: Spontaneous
  Country: CN (occurrence: CN)
  Receive Date: 20200309
  Receipt Date: 20200309
  Transmission Date: 20200409
  Serious: Yes (Hospitalization, Other)
  Sender: FDA-Public Use
  Company Number: CN-BAXTER-2020BAX004932

PATIENT
  Age: 64 Year
  Sex: Female
  Weight: 50 kg

DRUGS (4)
  1. ENDOXAN [Suspect]
     Active Substance: CYCLOPHOSPHAMIDE
     Indication: BREAST CANCER FEMALE
     Dosage: FIRST CYCLE; DAY 1; ENDOXAN + SODIUM CHLORIDE (NS) 100 ML
     Route: 041
     Dates: start: 20200218, end: 20200218
  2. 0.9% SODIUM CHLORIDE INJECTION [Suspect]
     Active Substance: SODIUM CHLORIDE
     Dosage: FIRST CYCLE; DAY 1; DOPAFEI 100 MG + SODIUM CHLORIDE (NS)
     Route: 041
     Dates: start: 20200218, end: 20200218
  3. DOPAFEI [Suspect]
     Active Substance: DOCETAXEL
     Indication: BREAST CANCER FEMALE
     Dosage: FIRST CYCLE; DAY 1; DOPAFEI + SODIUM CHLORIDE (NS) 250 ML
     Route: 041
     Dates: start: 20200218, end: 20200218
  4. 0.9% SODIUM CHLORIDE INJECTION [Suspect]
     Active Substance: SODIUM CHLORIDE
     Indication: MEDICATION DILUTION
     Dosage: FIRST CYCLE; DAY 1; ENDOXAN 0.864 G + SODIUM CHLORIDE (NS)
     Route: 041
     Dates: start: 20200218, end: 20200218

REACTIONS (3)
  - Bone marrow failure [Unknown]
  - White blood cell count decreased [Recovering/Resolving]
  - Neutropenia [Recovering/Resolving]

NARRATIVE: CASE EVENT DATE: 20200224
